FAERS Safety Report 6014862-8 (Version None)
Quarter: 2008Q4

REPORT INFORMATION
  Report Type: 
  Country: None (occurrence: None)
  Receive Date: 20081219
  Receipt Date: 20081212
  Transmission Date: 20090506
  Serious: Yes (Other)
  Sender: FDA-Public Use
  Company Number: GB-ROXANE LABORATORIES, INC.-2008-BP-03866RO

PATIENT
  Age: 36 Year
  Sex: Male

DRUGS (1)
  1. AZATHIOPRINE [Suspect]
     Route: 062

REACTIONS (3)
  - DERMATITIS CONTACT [None]
  - DRUG HYPERSENSITIVITY [None]
  - RASH PRURITIC [None]
